FAERS Safety Report 8076812-2 (Version None)
Quarter: 2012Q1

REPORT INFORMATION
  Report Type: 
  Country: None (occurrence: None)
  Receive Date: 20120127
  Receipt Date: 20120124
  Transmission Date: 20120608
  Serious: Yes (Hospitalization, Other)
  Sender: FDA-Public Use
  Company Number: US-BAYER-2012-000484

PATIENT
  Age: 73 Year
  Sex: Male

DRUGS (6)
  1. ANTI-DIABETICS [Concomitant]
     Indication: DIABETES MELLITUS
     Dosage: UNK
     Route: 048
  2. NEXAVAR [Suspect]
     Indication: HEPATIC NEOPLASM MALIGNANT
     Dosage: 1 AM AND 1 PM
     Route: 048
     Dates: start: 20111223, end: 20120103
  3. ANTITHROMBOTIC AGENTS [Concomitant]
     Dosage: UNK
     Route: 048
  4. NEXAVAR [Suspect]
     Dosage: 1 AM AND 1 PM
     Dates: start: 20120124
  5. ANXIOLYTICS [Concomitant]
     Indication: ANXIETY
     Dosage: UNK
  6. HYDROCODONE [Concomitant]
     Indication: PAIN
     Route: 048

REACTIONS (15)
  - NECK PAIN [None]
  - ABASIA [None]
  - OEDEMA PERIPHERAL [None]
  - MUSCULAR WEAKNESS [None]
  - HEADACHE [None]
  - CHEST DISCOMFORT [None]
  - DYSPNOEA [None]
  - MEMORY IMPAIRMENT [None]
  - COUGH [None]
  - HYPERSOMNIA [None]
  - PAIN [None]
  - HYPOTENSION [None]
  - FALL [None]
  - PNEUMONIA [None]
  - CYSTITIS [None]
